APPROVED DRUG PRODUCT: ACARBOSE
Active Ingredient: ACARBOSE
Strength: 25MG
Dosage Form/Route: TABLET;ORAL
Application: A078470 | Product #001 | TE Code: AB
Applicant: HIKMA PHARMACEUTICALS USA INC
Approved: May 7, 2008 | RLD: No | RS: No | Type: RX